FAERS Safety Report 18222348 (Version 1)
Quarter: 2020Q3

REPORT INFORMATION
  Report Type: Spontaneous
  Country: FR (occurrence: FR)
  Receive Date: 20200902
  Receipt Date: 20200902
  Transmission Date: 20201103
  Serious: Yes (Hospitalization)
  Sender: FDA-Public Use
  Company Number: FR-SUN PHARMACEUTICAL INDUSTRIES LTD-2020RR-259849

PATIENT
  Age: 28 Year
  Sex: Female

DRUGS (4)
  1. METHYLPREDNISOLONE. [Suspect]
     Active Substance: METHYLPREDNISOLONE
     Indication: PREMEDICATION
     Dosage: 1 GRAM, IN TOTAL
     Route: 042
     Dates: start: 20200707, end: 20200707
  2. PARACETAMOL [Suspect]
     Active Substance: ACETAMINOPHEN
     Indication: PREMEDICATION
     Dosage: 1 GRAM, IN TOTAL
     Route: 048
     Dates: start: 20200707, end: 20200707
  3. LEMTRADA [Suspect]
     Active Substance: ALEMTUZUMAB
     Indication: MULTIPLE SCLEROSIS
     Dosage: 1 DOSAGE FORM, IN TOTAL
     Route: 042
     Dates: start: 20200707, end: 20200707
  4. DEXCHLORPHENIRAMINE (MALEATE DE) [Suspect]
     Active Substance: DEXCHLORPHENIRAMINE MALEATE
     Indication: PREMEDICATION
     Dosage: 5 MILLIGRAM, IN TOTAL
     Route: 042
     Dates: start: 20200707, end: 20200707

REACTIONS (2)
  - Lymphopenia [Recovering/Resolving]
  - Hepatocellular injury [Recovered/Resolved]

NARRATIVE: CASE EVENT DATE: 20200708
